FAERS Safety Report 4521621-1 (Version None)
Quarter: 2004Q4

REPORT INFORMATION
  Report Type: 
  Country: None (occurrence: None)
  Receive Date: 20041206
  Receipt Date: 20041122
  Transmission Date: 20050328
  Serious: Yes (Hospitalization)
  Sender: FDA-Public Use
  Company Number: USA-2004-0017775

PATIENT
  Age: 83 Year
  Sex: Male

DRUGS (1)
  1. SPECTRACEF [Suspect]
     Indication: INFECTION
     Dosage: MG

REACTIONS (3)
  - OFF LABEL USE [None]
  - THERAPY NON-RESPONDER [None]
  - TOE AMPUTATION [None]
